FAERS Safety Report 25789804 (Version 1)
Quarter: 2025Q3

REPORT INFORMATION
  Report Type: Spontaneous
  Country: EU (occurrence: EU)
  Receive Date: 20250911
  Receipt Date: 20250911
  Transmission Date: 20251020
  Serious: Yes (Hospitalization, Other)
  Sender: AUROBINDO
  Company Number: EU-I.R.I.S.-S25011844

PATIENT
  Age: 66 Year
  Sex: Male

DRUGS (7)
  1. PERINDOPRIL [Suspect]
     Active Substance: PERINDOPRIL
     Indication: Product used for unknown indication
     Route: 065
  2. ATORVASTATIN [Concomitant]
     Active Substance: ATORVASTATIN
     Indication: Product used for unknown indication
     Route: 065
  3. PHENPROCOUMON [Concomitant]
     Active Substance: PHENPROCOUMON
     Indication: Product used for unknown indication
     Route: 065
  4. ACETAMINOPHEN [Concomitant]
     Active Substance: ACETAMINOPHEN
     Indication: Product used for unknown indication
     Route: 065
  5. COLCHICINE [Concomitant]
     Active Substance: COLCHICINE
     Indication: Product used for unknown indication
     Route: 065
  6. CETUXIMAB [Concomitant]
     Active Substance: CETUXIMAB
     Indication: Colon cancer stage III
     Dosage: 200 MILLIGRAM/SQ. METER, ONCE A DAY
     Route: 065
  7. ENCORAFENIB [Concomitant]
     Active Substance: ENCORAFENIB
     Indication: Colon cancer stage III
     Dosage: 200 MILLIGRAM, ONCE A DAY
     Route: 065

REACTIONS (3)
  - Renal impairment [Unknown]
  - Hypophosphataemia [Unknown]
  - Hypercalcaemia [Unknown]
